FAERS Safety Report 9342692 (Version 1)
Quarter: 2013Q2

REPORT INFORMATION
  Report Type: Spontaneous
  Country: FR (occurrence: FR)
  Receive Date: 20130611
  Receipt Date: 20130611
  Transmission Date: 20140414
  Serious: Yes (Life-Threatening, Hospitalization)
  Sender: FDA-Public Use
  Company Number: FR-ASTRAZENECA-2013SE40804

PATIENT
  Age: 3542 Week
  Sex: Male

DRUGS (11)
  1. DIPRIVAN [Suspect]
     Indication: ANAESTHESIA
     Route: 042
     Dates: start: 20130311, end: 20130311
  2. SUPRANE [Suspect]
     Indication: ANAESTHESIA
     Dosage: 4 PERCENTAGE
     Route: 042
     Dates: start: 20130311, end: 20130311
  3. CEFUROXIME [Suspect]
     Indication: ANTIBIOTIC PROPHYLAXIS
     Route: 042
     Dates: start: 20130311, end: 20130311
  4. EPHEDRINE [Suspect]
     Indication: HYPOTENSION
     Route: 042
     Dates: start: 20130311, end: 20130311
  5. EPHEDRINE [Suspect]
     Indication: HYPOTENSION
     Route: 042
     Dates: start: 20130311, end: 20130311
  6. EPHEDRINE [Suspect]
     Indication: HYPOTENSION
     Route: 042
     Dates: start: 20130311, end: 20130311
  7. NIMBEX [Suspect]
     Indication: ANAESTHESIA
     Route: 042
     Dates: start: 20130311, end: 20130311
  8. SUFENTANIL [Suspect]
     Indication: ANAESTHESIA
     Route: 042
     Dates: start: 20130311, end: 20130311
  9. ATRACURIUM [Suspect]
     Indication: ANAESTHESIA
     Route: 042
     Dates: start: 20130311, end: 20130311
  10. RAPIFEN [Suspect]
     Indication: ANAESTHESIA
     Route: 042
     Dates: start: 20130311, end: 20130311
  11. KETAMINE PANPHARMA [Suspect]
     Indication: ANAESTHESIA
     Route: 042
     Dates: start: 20130311, end: 20130311

REACTIONS (1)
  - Shock [Recovered/Resolved]
